FAERS Safety Report 12378963 (Version 3)
Quarter: 2016Q3

REPORT INFORMATION
  Report Type: Spontaneous
  Country: US (occurrence: US)
  Receive Date: 20160517
  Receipt Date: 20160901
  Transmission Date: 20161109
  Serious: No
  Sender: FDA-Public Use
  Company Number: US-RELYPSA-RLY2016000265

PATIENT
  Age: 58 Year
  Sex: Male

DRUGS (16)
  1. VENTOLIN HFA [Concomitant]
     Active Substance: ALBUTEROL SULFATE
  2. NOVOLOG [Concomitant]
     Active Substance: INSULIN ASPART
  3. CLONAZEPAM. [Concomitant]
     Active Substance: CLONAZEPAM
  4. VELTASSA [Suspect]
     Active Substance: PATIROMER
     Indication: HYPERKALAEMIA
     Dosage: 8.4 G, QD
     Route: 048
     Dates: start: 20160309
  5. NASONEX [Concomitant]
     Active Substance: MOMETASONE FUROATE
  6. MONTELUKAST SODIUM. [Concomitant]
     Active Substance: MONTELUKAST SODIUM
  7. MYCOPHENOLIC ACID. [Concomitant]
     Active Substance: MYCOPHENOLIC ACID
  8. PANTOPRAZOLE SODIUM. [Concomitant]
     Active Substance: PANTOPRAZOLE SODIUM
  9. PRAVASTATIN SODIUM. [Concomitant]
     Active Substance: PRAVASTATIN SODIUM
  10. TACROLIMUS. [Concomitant]
     Active Substance: TACROLIMUS
  11. AMLODIPINE BESYLATE. [Concomitant]
     Active Substance: AMLODIPINE BESYLATE
  12. LISINOPRIL. [Concomitant]
     Active Substance: LISINOPRIL
  13. FUROSEMIDE. [Concomitant]
     Active Substance: FUROSEMIDE
  14. PULMICORT TURBUHALER [Concomitant]
     Active Substance: BUDESONIDE
  15. ZYRTEC [Concomitant]
     Active Substance: CETIRIZINE HYDROCHLORIDE
  16. INSULIN GLARGINE [Concomitant]
     Active Substance: INSULIN GLARGINE

REACTIONS (5)
  - Constipation [Unknown]
  - Dyspepsia [Unknown]
  - Asthenia [Unknown]
  - Abdominal pain [Unknown]
  - Bowel movement irregularity [Unknown]

NARRATIVE: CASE EVENT DATE: 201603
